FAERS Safety Report 20003724 (Version 1)
Quarter: 2021Q4

REPORT INFORMATION
  Report Type: Spontaneous
  Country: CN (occurrence: CN)
  Receive Date: 20211028
  Receipt Date: 20211028
  Transmission Date: 20220303
  Serious: Yes (Other)
  Sender: FDA-Public Use
  Company Number: CN-009507513-2110CHN007169

PATIENT
  Age: 51 Year
  Sex: Female
  Weight: 59 kg

DRUGS (4)
  1. KEYTRUDA [Suspect]
     Active Substance: PEMBROLIZUMAB
     Indication: Chemotherapy
     Dosage: DOSE: 100  MG, FREQUENCY: ONCE
     Route: 041
     Dates: start: 20211004, end: 20211004
  2. KEYTRUDA [Suspect]
     Active Substance: PEMBROLIZUMAB
     Indication: Cervix carcinoma
  3. NEDAPLATIN [Suspect]
     Active Substance: NEDAPLATIN
     Indication: Chemotherapy
     Dosage: DOSE: 40 MG, FREQUENCY: EVERY 7 DAYS (Q7D)
     Route: 041
     Dates: start: 20210927, end: 20210927
  4. NEDAPLATIN [Suspect]
     Active Substance: NEDAPLATIN
     Indication: Cervix carcinoma

REACTIONS (3)
  - Myelosuppression [Recovering/Resolving]
  - Underdose [Unknown]
  - Product use in unapproved indication [Unknown]

NARRATIVE: CASE EVENT DATE: 20211004
